FAERS Safety Report 24153109 (Version 1)
Quarter: 2024Q3

REPORT INFORMATION
  Report Type: Spontaneous
  Country: RU (occurrence: RU)
  Receive Date: 20240730
  Receipt Date: 20240730
  Transmission Date: 20241016
  Serious: Yes (Life-Threatening)
  Sender: BAUSCH AND LOMB
  Company Number: RU-BAUSCH-BL-2024-011242

PATIENT
  Age: 27 Year
  Sex: Female

DRUGS (4)
  1. DEXAMETHASONE [Suspect]
     Active Substance: DEXAMETHASONE
     Indication: Stevens-Johnson syndrome
     Route: 042
  2. VALPROIC ACID [Suspect]
     Active Substance: VALPROIC ACID
     Indication: Bipolar disorder
     Route: 065
  3. DYDROGESTERONE [Concomitant]
     Active Substance: DYDROGESTERONE
     Indication: Transgender hormonal therapy
     Route: 065
  4. ESTRADIOL [Concomitant]
     Active Substance: ESTRADIOL
     Indication: Transgender hormonal therapy
     Route: 065

REACTIONS (2)
  - Stevens-Johnson syndrome [Recovered/Resolved]
  - Therapeutic product effect incomplete [Unknown]
